FAERS Safety Report 8313914-7 (Version None)
Quarter: 2012Q2

REPORT INFORMATION
  Report Type: 
  Country: None (occurrence: None)
  Receive Date: 20120426
  Receipt Date: 20120426
  Transmission Date: 20120825
  Serious: No
  Sender: FDA-Public Use
  Company Number: None

PATIENT
  Sex: Female
  Weight: 58.967 kg

DRUGS (3)
  1. RITALIN [Concomitant]
  2. MONTELUKAST [Suspect]
     Indication: ASTHMA
     Dosage: ONE TABLET
     Route: 060
     Dates: start: 20120419, end: 20120424
  3. MONTELUKAST [Suspect]
     Indication: ASTHMA
     Dosage: ONE TABLET
     Route: 060

REACTIONS (6)
  - COUGH [None]
  - CONFUSIONAL STATE [None]
  - MOTOR DYSFUNCTION [None]
  - ASTHMA [None]
  - CLUMSINESS [None]
  - SUICIDAL BEHAVIOUR [None]
